FAERS Safety Report 7122824-2 (Version None)
Quarter: 2010Q4

REPORT INFORMATION
  Report Type: 
  Country: None (occurrence: None)
  Receive Date: 20101124
  Receipt Date: 20101116
  Transmission Date: 20110411
  Serious: Yes (Other)
  Sender: FDA-Public Use
  Company Number: PHHO2010US17493

PATIENT
  Sex: Female
  Weight: 62 kg

DRUGS (9)
  1. AMN107 AMN+CAP [Suspect]
     Indication: MALIGNANT MELANOMA
     Dosage: 400 MG, BID
     Route: 048
     Dates: start: 20101104, end: 20101115
  2. AMN107 AMN+CAP [Suspect]
     Dosage: 400 MG, BID
     Route: 048
     Dates: start: 20101118
  3. OXYCODONE HCL [Concomitant]
  4. REMERON [Concomitant]
  5. MIRALAX [Concomitant]
  6. SENOKOT [Concomitant]
  7. DULCOLAX [Concomitant]
  8. COLACE [Concomitant]
  9. LACTULOSE [Concomitant]

REACTIONS (4)
  - DECREASED APPETITE [None]
  - FATIGUE [None]
  - PYREXIA [None]
  - TUMOUR PAIN [None]
